FAERS Safety Report 10059537 (Version 1)
Quarter: 2014Q2

REPORT INFORMATION
  Report Type: Spontaneous
  Country: US (occurrence: None)
  Receive Date: 20140402
  Receipt Date: 20140402
  Transmission Date: 20141212
  Serious: Yes (Death)
  Sender: FDA-Public Use
  Company Number: 2014P1002473

PATIENT
  Sex: 0

DRUGS (9)
  1. PREDNISONE TABLETS [Suspect]
     Indication: PLASMA CELL MYELOMA
  2. LENALIDOMIDE [Suspect]
     Indication: PLASMA CELL MYELOMA
  3. DOXORUBICIN [Concomitant]
  4. VINCRISTINE [Concomitant]
  5. DEXAMETHASONE [Concomitant]
  6. ASPIRIN [Concomitant]
  7. AMOXICILLIN [Concomitant]
  8. ACYCLOVIR [Concomitant]
  9. ERYTHROPOETIN [Suspect]
     Indication: ANAEMIA

REACTIONS (3)
  - Dizziness [None]
  - Pulmonary embolism [None]
  - Cardio-respiratory arrest [None]
